FAERS Safety Report 15213159 (Version 11)
Quarter: 2020Q4

REPORT INFORMATION
  Report Type: Spontaneous
  Country: US (occurrence: US)
  Receive Date: 20180730
  Receipt Date: 20201026
  Transmission Date: 20210113
  Serious: No
  Sender: FDA-Public Use
  Company Number: US-PFIZER INC-2018302103

PATIENT
  Age: 59 Year
  Sex: Female
  Weight: 61 kg

DRUGS (2)
  1. LYRICA [Suspect]
     Active Substance: PREGABALIN
     Indication: NEUROPATHY PERIPHERAL
     Dosage: 150 MG, 3X/DAY(TAKE 1 CAPSULE (150 MG TOTAL ) BY MOUTH THREE TIMES A DAY)
     Route: 048
  2. LYRICA [Suspect]
     Active Substance: PREGABALIN
     Indication: FIBROMYALGIA
     Dosage: 100 MG, 3X/DAY
     Route: 048

REACTIONS (7)
  - Limb discomfort [Unknown]
  - Hyperaesthesia [Unknown]
  - Crying [Unknown]
  - Intentional product misuse [Unknown]
  - Pain [Unknown]
  - Drug ineffective [Unknown]
  - Confusional state [Unknown]
